FAERS Safety Report 10674028 (Version 1)
Quarter: 2014Q4

REPORT INFORMATION
  Report Type: Spontaneous
  Country: US (occurrence: None)
  Receive Date: 20141222
  Receipt Date: 20141222
  Transmission Date: 20150529
  Serious: Yes (Hospitalization)
  Sender: FDA-Public Use
  Company Number: CIO14085518

PATIENT
  Sex: Male

DRUGS (1)
  1. NYQUIL, FORM/VERSION/FLAVOR UNKNOWN(ETHANOL UNKNOWN UNK, CHLORPHENAMINE MALEATE UNKNOWN UNK, DEXTROMETHORPHAN HYDROBROMIDE UNKNOWN UNK, DIPHENHYDRAMINE HYDROCHLORIDE UNKNOWN UNK, DOXYLAMINE SUCCINATE UNKNOWN UNK, PARACETAMOL UNKNOWN UNK, PSEUDOEPHEDRINE HYDROCHLORIDE UNKNOWN UNK) UNKNOWN, 1DF [Suspect]
     Active Substance: ACETAMINOPHEN\CHLORPHENIRAMINE MALEATE\DEXTROMETHORPHAN\DIPHENHYDRAMINE\DOXYLAMINE\PSEUDOEPHEDRINE HYDROCHLORIDE

REACTIONS (1)
  - Hospitalisation [None]
